FAERS Safety Report 20778564 (Version 1)
Quarter: 2022Q2

REPORT INFORMATION
  Report Type: Spontaneous
  Country: US (occurrence: US)
  Receive Date: 20220503
  Receipt Date: 20220503
  Transmission Date: 20220720
  Serious: No
  Sender: FDA-Public Use
  Company Number: US-MYLANLABS-2022M1030125

PATIENT
  Sex: Female
  Weight: 81.65 kg

DRUGS (1)
  1. SEMGLEE (INSULIN GLARGINE-YFGN) [Suspect]
     Active Substance: INSULIN GLARGINE-YFGN
     Indication: Type 2 diabetes mellitus
     Dosage: AM (24 UNITS PER DAY IN THE MORNING)
     Route: 058
     Dates: start: 20220420

REACTIONS (3)
  - Product dose omission issue [Unknown]
  - Liquid product physical issue [Unknown]
  - Expired product administered [Unknown]
